FAERS Safety Report 13498375 (Version 5)
Quarter: 2018Q1

REPORT INFORMATION
  Report Type: Spontaneous
  Country: US (occurrence: US)
  Receive Date: 20170430
  Receipt Date: 20180312
  Transmission Date: 20180508
  Serious: No
  Sender: FDA-Public Use
  Company Number: US-ASTRAZENECA-2017SE42139

PATIENT
  Age: 81 Year
  Sex: Female
  Weight: 42.2 kg

DRUGS (10)
  1. DALIRESP [Suspect]
     Active Substance: ROFLUMILAST
     Indication: BRONCHITIS
     Dosage: ONCE DAILY
     Route: 048
     Dates: start: 20171009
  2. DALIRESP [Suspect]
     Active Substance: ROFLUMILAST
     Indication: BRONCHITIS
     Route: 048
  3. BREO ELLIPTA [Concomitant]
     Active Substance: FLUTICASONE FUROATE\VILANTEROL TRIFENATATE
     Indication: CHRONIC OBSTRUCTIVE PULMONARY DISEASE
     Route: 055
  4. DALIRESP [Suspect]
     Active Substance: ROFLUMILAST
     Indication: CHRONIC OBSTRUCTIVE PULMONARY DISEASE
     Dosage: ONCE DAILY
     Route: 048
     Dates: start: 20171009
  5. LOSARTAN. [Concomitant]
     Active Substance: LOSARTAN
     Indication: HYPERTENSION
     Dosage: EVERY MORNING
     Route: 048
  6. ROBITUSSIN D [Concomitant]
     Indication: COUGH
  7. DALIRESP [Suspect]
     Active Substance: ROFLUMILAST
     Indication: CHRONIC OBSTRUCTIVE PULMONARY DISEASE
     Dosage: ONCE DAILY
     Route: 048
     Dates: start: 201704
  8. DALIRESP [Suspect]
     Active Substance: ROFLUMILAST
     Indication: CHRONIC OBSTRUCTIVE PULMONARY DISEASE
     Route: 048
  9. DALIRESP [Suspect]
     Active Substance: ROFLUMILAST
     Indication: BRONCHITIS
     Dosage: ONCE DAILY
     Route: 048
     Dates: start: 201704
  10. BREO ELLIPTA [Concomitant]
     Active Substance: FLUTICASONE FUROATE\VILANTEROL TRIFENATATE
     Indication: BRONCHITIS
     Route: 055

REACTIONS (14)
  - Sleep disorder [Unknown]
  - Anxiety [Unknown]
  - Dyspnoea [Unknown]
  - Eye swelling [Unknown]
  - Weight decreased [Not Recovered/Not Resolved]
  - Drug hypersensitivity [Unknown]
  - Asthenia [Not Recovered/Not Resolved]
  - Nightmare [Unknown]
  - Erythema [Unknown]
  - Pruritus [Recovered/Resolved]
  - Malaise [Unknown]
  - Nervousness [Unknown]
  - Skin discolouration [Unknown]
  - Decreased appetite [Not Recovered/Not Resolved]

NARRATIVE: CASE EVENT DATE: 2017
